FAERS Safety Report 5948595-0 (Version None)
Quarter: 2008Q4

REPORT INFORMATION
  Report Type: 
  Country: None (occurrence: None)
  Receive Date: 20081111
  Receipt Date: 20081106
  Transmission Date: 20090506
  Serious: Yes (Death, Hospitalization)
  Sender: FDA-Public Use
  Company Number: FR-JNJFOC-20081101235

PATIENT
  Sex: Female

DRUGS (11)
  1. HALDOL [Suspect]
  2. HALDOL [Suspect]
  3. HALDOL [Suspect]
  4. HALDOL [Suspect]
  5. HALDOL [Suspect]
     Indication: DEMENTIA
  6. THERALENE [Suspect]
     Indication: DRUG USE FOR UNKNOWN INDICATION
  7. KARDEGIC [Concomitant]
  8. MOVICOL [Concomitant]
  9. SECTRAL [Concomitant]
  10. EFFEXOR [Concomitant]
  11. SERESTA [Concomitant]
     Indication: AGITATION

REACTIONS (3)
  - ASTHENIA [None]
  - DEATH [None]
  - TREMOR [None]
